FAERS Safety Report 9521407 (Version 1)
Quarter: 2013Q3

REPORT INFORMATION
  Report Type: Spontaneous
  Country: US (occurrence: None)
  Receive Date: 20130911
  Receipt Date: 20130911
  Transmission Date: 20140515
  Serious: No
  Sender: FDA-Public Use
  Company Number: AEUSA201200512

PATIENT
  Age: 42 Year
  Sex: Female

DRUGS (4)
  1. GAMUNEX-C (10 PCT) [Suspect]
     Indication: HYPOGAMMAGLOBULINAEMIA
     Route: 042
     Dates: start: 2011
  2. GAMUNEX [Suspect]
     Indication: HYPOGAMMAGLOBULINAEMIA
     Route: 042
     Dates: start: 2008, end: 2011
  3. BENAZEPRIL [Concomitant]
  4. SULFASALAZINE [Concomitant]

REACTIONS (4)
  - Headache [None]
  - Arthralgia [None]
  - Abdominal pain upper [None]
  - Insomnia [None]
